FAERS Safety Report 6039726-5 (Version None)
Quarter: 2009Q1

REPORT INFORMATION
  Report Type: 
  Country: None (occurrence: None)
  Receive Date: 20090116
  Receipt Date: 20090107
  Transmission Date: 20090719
  Serious: Yes (Hospitalization)
  Sender: FDA-Public Use
  Company Number: PHHY2008GB31881

PATIENT
  Sex: Female

DRUGS (2)
  1. CLOZARIL [Suspect]
     Indication: SCHIZOPHRENIA
     Dosage: UNK
     Dates: start: 20070523, end: 20081210
  2. CLOZARIL [Suspect]
     Dosage: UNK

REACTIONS (3)
  - ANKLE FRACTURE [None]
  - PNEUMONIA [None]
  - SURGERY [None]
